FAERS Safety Report 17800715 (Version 2)
Quarter: 2020Q2

REPORT INFORMATION
  Report Type: Spontaneous
  Country: FR (occurrence: FR)
  Receive Date: 20200518
  Receipt Date: 20200530
  Transmission Date: 20200714
  Serious: Yes (Hospitalization)
  Sender: FDA-Public Use
  Company Number: NVSC2020FR134626

PATIENT
  Age: 46 Year
  Sex: Female
  Weight: 47 kg

DRUGS (4)
  1. SERTRALINE HYDROCHLORIDE. [Suspect]
     Active Substance: SERTRALINE HYDROCHLORIDE
     Indication: INTENTIONAL OVERDOSE
     Dosage: 700 MG(TOTAL)
     Route: 048
     Dates: start: 20191223, end: 20191223
  2. SERESTA [Suspect]
     Active Substance: OXAZEPAM
     Indication: INTENTIONAL OVERDOSE
     Dosage: 600 MG()TOTAL
     Route: 048
     Dates: start: 20191223, end: 20191223
  3. PRAZEPAM [Suspect]
     Active Substance: PRAZEPAM
     Indication: INTENTIONAL OVERDOSE
     Dosage: 200 MG(TOTAL)
     Route: 048
     Dates: start: 20191223, end: 20191223
  4. PARACETAMOL [Suspect]
     Active Substance: ACETAMINOPHEN
     Indication: INTENTIONAL OVERDOSE
     Dosage: 24 G(TOTAL)
     Route: 048
     Dates: start: 20191223, end: 20191223

REACTIONS (4)
  - Bladder dilatation [Recovered/Resolved]
  - Somnolence [Recovered/Resolved]
  - Poisoning deliberate [Recovered/Resolved]
  - Prothrombin time ratio decreased [Recovered/Resolved]

NARRATIVE: CASE EVENT DATE: 20191223
